FAERS Safety Report 21163431 (Version 3)
Quarter: 2022Q3

REPORT INFORMATION
  Report Type: Other
  Country: US (occurrence: US)
  Receive Date: 20220802
  Receipt Date: 20220819
  Transmission Date: 20221027
  Serious: Yes (Hospitalization, Other)
  Sender: FDA-Public Use
  Company Number: US-Covis Pharma GmbH-2022COV02317

PATIENT
  Age: 39 Year
  Sex: Female
  Weight: 81.720 kg

DRUGS (2)
  1. MAKENA [Suspect]
     Active Substance: HYDROXYPROGESTERONE CAPROATE
     Indication: Premature delivery
     Route: 058
     Dates: start: 20220601, end: 20220715
  2. MAKENA [Suspect]
     Active Substance: HYDROXYPROGESTERONE CAPROATE
     Indication: Premature delivery

REACTIONS (4)
  - Preterm premature rupture of membranes [Recovered/Resolved]
  - Cervical dilatation [Recovered/Resolved]
  - Premature delivery [Recovered/Resolved]
  - Inappropriate schedule of product administration [Unknown]

NARRATIVE: CASE EVENT DATE: 20220601
